FAERS Safety Report 7753571-1 (Version None)
Quarter: 2011Q3

REPORT INFORMATION
  Report Type: 
  Country: None (occurrence: None)
  Receive Date: 20110915
  Receipt Date: 20110913
  Transmission Date: 20111222
  Serious: Yes (Hospitalization)
  Sender: FDA-Public Use
  Company Number: US-GLAXOSMITHKLINE-A0839062A

PATIENT
  Age: 54 Year
  Sex: Male
  Weight: 136.4 kg

DRUGS (8)
  1. GLUCOPHAGE [Concomitant]
  2. CRESTOR [Concomitant]
  3. NORVASC [Concomitant]
  4. INSULIN [Concomitant]
  5. LOTENSIN [Concomitant]
  6. AVANDAMET [Suspect]
     Indication: TYPE 2 DIABETES MELLITUS
     Route: 048
     Dates: start: 20040101, end: 20071101
  7. GLUCOTROL [Concomitant]
  8. BENICAR [Concomitant]

REACTIONS (4)
  - RENAL FAILURE [None]
  - BRONCHITIS [None]
  - ANAEMIA [None]
  - CARDIAC FAILURE CONGESTIVE [None]
